FAERS Safety Report 5900850-6 (Version None)
Quarter: 2008Q3

REPORT INFORMATION
  Report Type: 
  Country: None (occurrence: None)
  Receive Date: 20080924
  Receipt Date: 20080916
  Transmission Date: 20090109
  Serious: Yes (Death, Life-Threatening)
  Sender: FDA-Public Use
  Company Number: 002301

PATIENT
  Age: 17 Year
  Sex: Male

DRUGS (4)
  1. BUSULFEX [Suspect]
     Indication: STEM CELL TRANSPLANT
     Dosage: 144 MG
     Route: 042
     Dates: start: 20070222, end: 20070223
  2. BUSULFEX [Suspect]
     Dosage: 35 MG, DAILY DOSE; INTRAVENOUS
     Route: 042
     Dates: start: 20070224, end: 20070224
  3. CYTARABINE [Concomitant]
  4. PHENYTOIN [Concomitant]

REACTIONS (8)
  - BILIRUBIN CONJUGATED INCREASED [None]
  - BLAST CELLS PRESENT [None]
  - HYPERBILIRUBINAEMIA [None]
  - JAUNDICE [None]
  - LEUKAEMIA RECURRENT [None]
  - MALAISE [None]
  - MALIGNANT NEOPLASM PROGRESSION [None]
  - VENOOCCLUSIVE LIVER DISEASE [None]
